FAERS Safety Report 11056248 (Version 1)
Quarter: 2015Q2

REPORT INFORMATION
  Report Type: Spontaneous
  Country: FR (occurrence: FR)
  Receive Date: 20150422
  Receipt Date: 20150422
  Transmission Date: 20150821
  Serious: Yes (Hospitalization)
  Sender: FDA-Public Use
  Company Number: FR-ASTELLAS-2015EU006021

PATIENT
  Age: 26 Year
  Sex: Female

DRUGS (3)
  1. PROGRAF [Suspect]
     Active Substance: TACROLIMUS\TACROLIMUS ANHYDROUS
     Indication: LUNG TRANSPLANT
     Dosage: 1.5 MG IN THE MORNING AND 1 MG IN THE EVENING
     Route: 048
  2. PROGRAF [Suspect]
     Active Substance: TACROLIMUS\TACROLIMUS ANHYDROUS
     Dosage: UNK, UNKNOWN FREQ.
     Route: 060
  3. MYCOPHENOLATE MOFETIL. [Concomitant]
     Active Substance: MYCOPHENOLATE MOFETIL
     Indication: LUNG TRANSPLANT
     Route: 048

REACTIONS (6)
  - Gastrointestinal hypomotility [Unknown]
  - Wrong technique in drug usage process [Unknown]
  - Abdominal pain [Unknown]
  - Product use issue [Unknown]
  - Distal intestinal obstruction syndrome [Unknown]
  - Vomiting [Unknown]
